FAERS Safety Report 18643087 (Version 1)
Quarter: 2020Q4

REPORT INFORMATION
  Report Type: Spontaneous
  Country: US (occurrence: US)
  Receive Date: 20201218
  Receipt Date: 20201218
  Transmission Date: 20210114
  Serious: Yes (Hospitalization)
  Sender: FDA-Public Use
  Company Number: None

PATIENT
  Age: 69 Year
  Sex: Female

DRUGS (18)
  1. HECTOROL [Concomitant]
     Active Substance: DOXERCALCIFEROL
  2. FERREX/NU-IRON [Concomitant]
  3. ALBUTEROL HFA [Concomitant]
     Active Substance: ALBUTEROL SULFATE
  4. METOLAZONE. [Concomitant]
     Active Substance: METOLAZONE
  5. WARFARIN [Concomitant]
     Active Substance: WARFARIN
  6. BREO ELLIPTA [Concomitant]
     Active Substance: FLUTICASONE FUROATE\VILANTEROL TRIFENATATE
  7. VITAMIN D3 [Concomitant]
     Active Substance: CHOLECALCIFEROL
  8. PREDNISONE. [Concomitant]
     Active Substance: PREDNISONE
  9. SPIRONOLACTONE. [Concomitant]
     Active Substance: SPIRONOLACTONE
  10. TYLENOL [Concomitant]
     Active Substance: ACETAMINOPHEN
  11. DICLOFENAC TOPICAL GEL [Concomitant]
  12. ASTEPRO [Concomitant]
     Active Substance: AZELASTINE HYDROCHLORIDE
  13. TORSEMIDE. [Concomitant]
     Active Substance: TORSEMIDE
  14. AMBRISENTAN 10MG TABLETS 30/BO: 10MG [Suspect]
     Active Substance: AMBRISENTAN
     Indication: PULMONARY HYPERTENSION
     Route: 048
     Dates: start: 202003
  15. SILDENAFIL. [Concomitant]
     Active Substance: SILDENAFIL
  16. LOVASTATIN. [Concomitant]
     Active Substance: LOVASTATIN
  17. TRAMADOL. [Concomitant]
     Active Substance: TRAMADOL
  18. K-TAB [Concomitant]
     Active Substance: POTASSIUM CHLORIDE

REACTIONS (1)
  - Hospitalisation [None]

NARRATIVE: CASE EVENT DATE: 20201128
